APPROVED DRUG PRODUCT: LIDOCAINE HYDROCHLORIDE
Active Ingredient: LIDOCAINE HYDROCHLORIDE
Strength: 1%
Dosage Form/Route: INJECTABLE;INJECTION
Application: A217692 | Product #003 | TE Code: AP
Applicant: MANKIND PHARMA LTD
Approved: Nov 29, 2023 | RLD: No | RS: No | Type: RX